FAERS Safety Report 20968761 (Version 1)
Quarter: 2022Q2

REPORT INFORMATION
  Report Type: Spontaneous
  Country: IT (occurrence: IT)
  Receive Date: 20220616
  Receipt Date: 20220616
  Transmission Date: 20220721
  Serious: Yes (Hospitalization)
  Sender: FDA-Public Use
  Company Number: None

PATIENT
  Age: 80 Year
  Sex: Male
  Weight: 64 kg

DRUGS (8)
  1. CARBOPLATIN [Suspect]
     Active Substance: CARBOPLATIN
     Dosage: UNIT DOSE : 350 MG , STRENGTH : 10 MG/ML , DURATION : 49 DAYS , FREQUENCY TIME : 1 CYCLICAL
     Route: 041
     Dates: start: 20220223, end: 20220413
  2. GEMCITABINE [Suspect]
     Active Substance: GEMCITABINE
     Indication: Lung neoplasm malignant
     Dosage: UNIT DOSE : 1700 MG , STRENGTH : 100 MG/ML , DURATION : 49 DAYS , FREQUENCY TIME : 1 CYCLICAL
     Route: 041
     Dates: start: 20220223, end: 20220413
  3. FUROSEMIDE [Concomitant]
     Active Substance: FUROSEMIDE
  4. PALEXIA [Concomitant]
     Active Substance: TAPENTADOL HYDROCHLORIDE
  5. BISOPROLOL [Concomitant]
     Active Substance: BISOPROLOL
  6. CLONIDINE [Concomitant]
     Active Substance: CLONIDINE
  7. CRESTOR [Concomitant]
     Active Substance: ROSUVASTATIN CALCIUM
  8. CLOPIDOGREL [Concomitant]
     Active Substance: CLOPIDOGREL BISULFATE

REACTIONS (3)
  - Anaemia [Not Recovered/Not Resolved]
  - Respiratory failure [Not Recovered/Not Resolved]
  - Pneumonitis [Not Recovered/Not Resolved]

NARRATIVE: CASE EVENT DATE: 20220428
